FAERS Safety Report 8272627-0 (Version None)
Quarter: 2012Q2

REPORT INFORMATION
  Report Type: 
  Country: None (occurrence: None)
  Receive Date: 20120410
  Receipt Date: 20080611
  Transmission Date: 20120825
  Serious: Yes (Hospitalization)
  Sender: FDA-Public Use
  Company Number: PHHY2008SG043904

PATIENT
  Sex: Male

DRUGS (2)
  1. GLEEVEC [Suspect]
     Indication: CHRONIC MYELOID LEUKAEMIA
     Dosage: 800 MG, DAILY
     Route: 048
     Dates: start: 20040501
  2. GLEEVEC [Suspect]
     Dosage: 400 MG, DAILY
     Route: 048

REACTIONS (3)
  - NEPHROLITHIASIS [None]
  - SKIN HYPERPIGMENTATION [None]
  - DYSPNOEA [None]
